FAERS Safety Report 4973307-7 (Version None)
Quarter: 2006Q2

REPORT INFORMATION
  Report Type: 
  Country: None (occurrence: None)
  Receive Date: 20060414
  Receipt Date: 20060404
  Transmission Date: 20061013
  Serious: Yes (Hospitalization, Other)
  Sender: FDA-Public Use
  Company Number: US-MERCK-0604USA00604

PATIENT
  Age: 47 Year
  Sex: Female
  Weight: 114 kg

DRUGS (7)
  1. VIOXX [Suspect]
     Indication: CARPAL TUNNEL SYNDROME
     Route: 048
     Dates: start: 20020401, end: 20030901
  2. XANAX [Concomitant]
     Route: 065
  3. PAXIL [Concomitant]
     Route: 065
  4. EFFEXOR [Concomitant]
     Route: 065
  5. ASPIRIN [Concomitant]
     Indication: ISCHAEMIC HEART DISEASE PROPHYLAXIS
     Route: 065
     Dates: start: 19950101
  6. MOTRIN [Concomitant]
     Route: 065
     Dates: start: 19970101, end: 20040101
  7. LASIX [Concomitant]
     Indication: OEDEMA PERIPHERAL
     Route: 065
     Dates: start: 20010101, end: 20040101

REACTIONS (11)
  - ANGINA PECTORIS [None]
  - BLADDER DISORDER [None]
  - CARDIAC DISORDER [None]
  - DYSPNOEA [None]
  - HEART RATE IRREGULAR [None]
  - HERNIA [None]
  - MYOCARDIAL INFARCTION [None]
  - PAIN IN EXTREMITY [None]
  - PULMONARY CONGESTION [None]
  - THROMBOSIS [None]
  - TRANSIENT ISCHAEMIC ATTACK [None]
